FAERS Safety Report 9033845 (Version 1)
Quarter: 2013Q1

REPORT INFORMATION
  Report Type: Spontaneous
  Country: US (occurrence: US)
  Receive Date: 20130128
  Receipt Date: 20130128
  Transmission Date: 20140127
  Serious: Yes (Hospitalization)
  Sender: FDA-Public Use
  Company Number: US-AMGEN-USASP2012070815

PATIENT
  Age: 59 Year
  Sex: Female

DRUGS (2)
  1. ENBREL [Suspect]
     Indication: ARTHRITIS
     Dosage: 50 MG, ONCE Q 2 WKS
     Dates: start: 20080101
  2. ENBREL [Suspect]
     Indication: AUTOIMMUNE INNER EAR DISEASE

REACTIONS (4)
  - Pericarditis [Recovered/Resolved]
  - Cardiac disorder [Recovered/Resolved]
  - Alopecia [Recovered/Resolved]
  - Fibromyalgia [Not Recovered/Not Resolved]
